FAERS Safety Report 5032281-8 (Version None)
Quarter: 2006Q2

REPORT INFORMATION
  Report Type: 
  Country: None (occurrence: None)
  Receive Date: 20060619
  Receipt Date: 20060609
  Transmission Date: 20061013
  Serious: Yes (Hospitalization, Other)
  Sender: FDA-Public Use
  Company Number: 2006-06-0827

PATIENT
  Age: 46 Year
  Sex: Female

DRUGS (6)
  1. PEG-INTRON [Suspect]
     Indication: HEPATITIS C
     Dosage: 150 MCG QWK SUBCUTANEOUS
     Route: 058
     Dates: start: 20060224
  2. REBETOL [Suspect]
     Indication: HEPATITIS C
     Dosage: 1200 MG QD ORAL
     Route: 048
     Dates: start: 20060224
  3. MORPHINE [Suspect]
     Indication: PAIN
     Dates: start: 20060501
  4. XANAX TABLETS` [Concomitant]
  5. EFFEXOR [Concomitant]
  6. LORTAB TABLETS [Concomitant]

REACTIONS (14)
  - ABDOMINAL PAIN UPPER [None]
  - ABNORMAL BEHAVIOUR [None]
  - DIARRHOEA [None]
  - DRUG DOSE OMISSION [None]
  - DYSKINESIA [None]
  - FEELING ABNORMAL [None]
  - INJECTION SITE ERYTHEMA [None]
  - INSOMNIA [None]
  - MAJOR DEPRESSION [None]
  - MENTAL DISORDER [None]
  - MIGRAINE [None]
  - STARING [None]
  - VIRAL INFECTION [None]
  - VOMITING [None]
